FAERS Safety Report 13124249 (Version 4)
Quarter: 2017Q1

REPORT INFORMATION
  Report Type: Report from Study
  Country: JP (occurrence: JP)
  Receive Date: 20170118
  Receipt Date: 20170131
  Transmission Date: 20170428
  Serious: Yes (Hospitalization)
  Sender: FDA-Public Use
  Company Number: JP-ROCHE-1638888

PATIENT
  Age: 79 Year
  Sex: Female
  Weight: 49 kg

DRUGS (61)
  1. DENOTAS [Concomitant]
     Active Substance: CALCIUM CARBONATE\CHOLECALCIFEROL\MAGNESIUM CARBONATE
     Indication: PROPHYLAXIS
     Route: 048
     Dates: end: 20151028
  2. PRECIPITATED CALCIUM CARBONATE [Concomitant]
     Active Substance: CALCIUM CARBONATE
     Route: 065
     Dates: start: 20151029, end: 20151126
  3. PYRIDOXAL [Concomitant]
     Active Substance: PYRIDOXAL
     Indication: NEUROPATHY PERIPHERAL
     Route: 048
     Dates: start: 20151217
  4. FAMOTIDINE. [Concomitant]
     Active Substance: FAMOTIDINE
     Indication: GASTRITIS
     Route: 048
     Dates: start: 20160512
  5. PERTUZUMAB [Suspect]
     Active Substance: PERTUZUMAB
     Indication: BREAST CANCER
     Dosage: THE FRACTIONATION DOSE FREQUENCY IS UNCERTAIN.?FORM STRENGTH: 420 MG/14ML
     Route: 041
     Dates: start: 20150918, end: 20150918
  6. DOCETAXEL. [Suspect]
     Active Substance: DOCETAXEL
     Indication: BREAST CANCER
     Dosage: DOSAGE IS UNCERTAIN.
     Route: 041
     Dates: start: 20151119, end: 20151210
  7. RANMARK [Concomitant]
     Active Substance: DENOSUMAB
     Route: 058
     Dates: start: 20150423
  8. SODIUM FERROUS CITRATE [Concomitant]
     Active Substance: SODIUM FERROUS CITRATE
     Route: 065
     Dates: start: 20160107, end: 20160518
  9. RINDERON VG [Concomitant]
     Active Substance: BETAMETHASONE VALERATE\GENTAMICIN SULFATE
     Route: 065
     Dates: start: 20160113, end: 20160128
  10. LEVOFLOXACIN HEMIHYDRATE [Concomitant]
     Active Substance: LEVOFLOXACIN
     Route: 065
     Dates: start: 20151210, end: 20160514
  11. TRASTUZUMAB [Suspect]
     Active Substance: TRASTUZUMAB
     Route: 041
     Dates: start: 20151119, end: 20151119
  12. DOCETAXEL. [Suspect]
     Active Substance: DOCETAXEL
     Route: 041
     Dates: start: 20160107
  13. FUROSEMIDE. [Suspect]
     Active Substance: FUROSEMIDE
     Route: 048
     Dates: start: 20151126
  14. ZOLPIDEM TARTRATE. [Concomitant]
     Active Substance: ZOLPIDEM TARTRATE
     Indication: INSOMNIA
     Route: 048
     Dates: start: 2014
  15. NEXIUM [Concomitant]
     Active Substance: ESOMEPRAZOLE MAGNESIUM
     Route: 065
     Dates: start: 20151009, end: 20151015
  16. FOLIAMIN [Concomitant]
     Active Substance: FOLIC ACID
     Route: 065
     Dates: start: 20151029, end: 20160107
  17. TATHION [Concomitant]
     Active Substance: GLUTATHIONE
     Route: 047
     Dates: start: 20151217, end: 20160920
  18. PERTUZUMAB [Suspect]
     Active Substance: PERTUZUMAB
     Route: 041
     Dates: start: 20151210
  19. TRASTUZUMAB [Suspect]
     Active Substance: TRASTUZUMAB
     Route: 041
     Dates: start: 20161007
  20. OMEPRAZOLE. [Concomitant]
     Active Substance: OMEPRAZOLE
     Route: 065
     Dates: end: 20151009
  21. MALFA [Concomitant]
     Active Substance: ALUMINUM HYDROXIDE\MAGNESIUM HYDROXIDE
     Route: 065
     Dates: start: 20151009, end: 20151112
  22. SHIGMABITAN [Concomitant]
     Route: 065
     Dates: start: 20151029, end: 20160107
  23. CALCIUM LACTATE [Concomitant]
     Active Substance: CALCIUM LACTATE
     Indication: HYPOKALAEMIA
     Route: 048
     Dates: start: 20151126
  24. LAC-B [Concomitant]
     Active Substance: BIFIDOBACTERIUM SPP.
     Route: 065
     Dates: start: 20151217, end: 20160225
  25. INFLUENZA HA VACCINE [Concomitant]
     Active Substance: INFLUENZA VIRUS VACCINE
     Route: 065
     Dates: start: 20161021, end: 20161021
  26. TRASTUZUMAB [Suspect]
     Active Substance: TRASTUZUMAB
     Indication: BREAST CANCER
     Dosage: THE FRACTIONATION DOSE FREQUENCY IS UNCERTAIN.
     Route: 041
     Dates: start: 20150918, end: 20150918
  27. OMEPRAZOLE. [Concomitant]
     Active Substance: OMEPRAZOLE
     Indication: GASTRIC ULCER
     Route: 048
  28. RANMARK [Concomitant]
     Active Substance: DENOSUMAB
     Indication: BREAST CANCER
     Route: 058
  29. FUNGIZONE [Concomitant]
     Active Substance: AMPHOTERICIN B
     Route: 065
     Dates: end: 20150924
  30. ARASENA-A [Concomitant]
     Active Substance: VIDARABINE
     Route: 065
     Dates: start: 20150924, end: 20151001
  31. ALOSENN [Concomitant]
     Active Substance: SENNA LEAF
     Route: 065
     Dates: start: 20151122, end: 20151122
  32. ROCALTROL [Concomitant]
     Active Substance: CALCITRIOL
     Indication: HYPOKALAEMIA
     Route: 048
     Dates: start: 20151126
  33. DEXALTIN [Concomitant]
     Active Substance: DEXAMETHASONE
     Route: 065
     Dates: start: 20151126, end: 20160930
  34. MYSER (JAPAN) [Concomitant]
     Route: 065
     Dates: start: 20151210, end: 20160208
  35. MYSER (JAPAN) [Concomitant]
     Route: 065
     Dates: start: 20160304, end: 20160831
  36. CEFDINIR. [Concomitant]
     Active Substance: CEFDINIR
     Route: 065
     Dates: start: 20160401, end: 20160430
  37. HYALEIN [Concomitant]
     Active Substance: HYALURONATE SODIUM
     Route: 047
     Dates: start: 20160514, end: 20160930
  38. PERTUZUMAB [Suspect]
     Active Substance: PERTUZUMAB
     Route: 041
     Dates: start: 20151119, end: 20151119
  39. LIDOMEX [Concomitant]
     Active Substance: PREDNISOLONE VALERATE ACETATE
     Route: 003
     Dates: start: 20161203
  40. COCARL [Concomitant]
     Active Substance: ACETAMINOPHEN
     Indication: PAIN
     Dosage: TAKEN FOR PAIN/BEFORE TAKING ANTICANCER PERTUZUMAB
     Route: 048
  41. KALIMATE [Concomitant]
     Active Substance: CALCIUM POLYSTYRENE SULFONATE
     Route: 065
     Dates: start: 20151029, end: 20160207
  42. DECADRON [Concomitant]
     Active Substance: DEXAMETHASONE
     Route: 065
     Dates: start: 20151120, end: 20160109
  43. DEXART [Concomitant]
     Active Substance: DEXAMETHASONE SODIUM PHOSPHATE
     Route: 065
     Dates: start: 20151119, end: 20160317
  44. HEPARINOID [Concomitant]
     Active Substance: CHONDROITIN SULFATE (BOVINE)
     Route: 065
     Dates: start: 20151217, end: 20160930
  45. TEPRENONE [Concomitant]
     Active Substance: TEPRENONE
     Route: 065
     Dates: start: 20160225, end: 20160511
  46. TRASTUZUMAB [Suspect]
     Active Substance: TRASTUZUMAB
     Route: 041
     Dates: start: 20151210, end: 20151210
  47. TAKECAB [Concomitant]
     Active Substance: VONOPRAZAN FUMURATE
     Route: 065
     Dates: start: 20151022, end: 20160407
  48. G-LASTA [Concomitant]
     Active Substance: PEGFILGRASTIM
     Route: 065
     Dates: start: 20151120
  49. SOLYUGEN G [Concomitant]
     Route: 065
     Dates: start: 20151224, end: 20151224
  50. VITAMEDIN (JAPAN) [Concomitant]
     Route: 065
     Dates: start: 20151224, end: 20151224
  51. MOHRUS TAPE L [Concomitant]
     Active Substance: KETOPROFEN
     Route: 061
     Dates: start: 20160422
  52. CELECOX [Concomitant]
     Active Substance: CELECOXIB
     Route: 048
     Dates: start: 20160609, end: 20160721
  53. KARY UNI [Concomitant]
     Active Substance: PIRENOXINE
     Route: 047
     Dates: start: 20160930
  54. AZUNOL [Concomitant]
     Active Substance: SODIUM GUALENATE
     Route: 047
     Dates: start: 20160107, end: 20160920
  55. FUROSEMIDE. [Suspect]
     Active Substance: FUROSEMIDE
     Indication: PLEURAL EFFUSION
     Route: 065
     Dates: start: 20160225
  56. MOSAPRIDE CITRATE [Concomitant]
     Active Substance: MOSAPRIDE CITRATE
     Route: 065
     Dates: end: 20151009
  57. RESTAMIN [Concomitant]
     Active Substance: DIPHENHYDRAMINE
     Route: 065
     Dates: start: 20150920
  58. RESTAMIN [Concomitant]
     Active Substance: DIPHENHYDRAMINE
     Route: 065
     Dates: start: 20151210, end: 20151217
  59. AZUNOL [Concomitant]
     Active Substance: SODIUM GUALENATE
     Route: 065
     Dates: start: 20151124, end: 20160930
  60. LAC-B [Concomitant]
     Active Substance: BIFIDOBACTERIUM SPP.
     Route: 065
     Dates: start: 20160306
  61. GENTAMICIN SULFATE. [Concomitant]
     Active Substance: GENTAMICIN SULFATE
     Route: 003
     Dates: start: 20160401, end: 20160428

REACTIONS (5)
  - Infusion related reaction [Recovered/Resolved]
  - Blood pressure decreased [Recovered/Resolved]
  - Depressed level of consciousness [Recovered/Resolved]
  - Pyrexia [Recovered/Resolved]
  - Loss of consciousness [Recovered/Resolved]

NARRATIVE: CASE EVENT DATE: 20150918
